FAERS Safety Report 9932239 (Version 1)
Quarter: 2014Q1

REPORT INFORMATION
  Report Type: Spontaneous
  Country: US (occurrence: US)
  Receive Date: 20140228
  Receipt Date: 20140228
  Transmission Date: 20141002
  Serious: No
  Sender: FDA-Public Use
  Company Number: US-ABBVIE-13P-163-1150417-00

PATIENT
  Sex: Female
  Weight: 90.8 kg

DRUGS (5)
  1. ANDROGEL [Suspect]
     Indication: BLOOD TESTOSTERONE DECREASED
     Dosage: 50 MILLIGRAMS DAILY
     Route: 061
     Dates: start: 20130727
  2. VALIUM [Concomitant]
     Indication: STRESS
  3. MELOXICAM [Concomitant]
     Indication: ARTHRITIS
  4. ASPIRIN [Concomitant]
     Indication: CARDIAC DISORDER
     Dosage: 81 MILLIGRAMS DAILY
  5. MULTIVITAMIN [Concomitant]
     Indication: VITAMIN SUPPLEMENTATION

REACTIONS (1)
  - Rash [Not Recovered/Not Resolved]
